FAERS Safety Report 8187997-1 (Version None)
Quarter: 2012Q1

REPORT INFORMATION
  Report Type: 
  Country: None (occurrence: None)
  Receive Date: 20120306
  Receipt Date: 20120228
  Transmission Date: 20120608
  Serious: Yes (Hospitalization)
  Sender: FDA-Public Use
  Company Number: IE-BAXTER-2012BH006152

PATIENT
  Age: 56 Year
  Sex: Male

DRUGS (9)
  1. SODIUM CHLORIDE 0.9% IN PLASTIC CONTAINER [Suspect]
     Route: 042
     Dates: start: 20120210, end: 20120212
  2. WATER FOR INJECTION [Suspect]
     Indication: PRODUCT USED FOR UNKNOWN INDICATION
     Route: 065
  3. SODIUM CHLORIDE 0.9% IN PLASTIC CONTAINER [Suspect]
     Route: 042
     Dates: start: 20120210, end: 20120212
  4. FLUCLOXACILLIN [Suspect]
     Indication: PRODUCT USED FOR UNKNOWN INDICATION
     Route: 042
     Dates: start: 20120210, end: 20120212
  5. SODIUM CHLORIDE 0.9% IN PLASTIC CONTAINER [Suspect]
     Route: 042
     Dates: start: 20120210, end: 20120212
  6. WATER FOR INJECTION [Suspect]
     Route: 065
  7. POTASSIUM PENICILLIN G [Suspect]
     Indication: CELLULITIS
     Route: 042
     Dates: start: 20120210, end: 20120212
  8. SODIUM CHLORIDE 0.9% IN PLASTIC CONTAINER [Suspect]
     Indication: PRODUCT USED FOR UNKNOWN INDICATION
     Route: 042
     Dates: start: 20120210, end: 20120212
  9. FLUCLOXACILLIN [Suspect]
     Route: 042
     Dates: start: 20120210, end: 20120212

REACTIONS (1)
  - INFLAMMATION [None]
